FAERS Safety Report 6683310-7 (Version None)
Quarter: 2010Q2

REPORT INFORMATION
  Report Type: 
  Country: None (occurrence: None)
  Receive Date: 20100415
  Receipt Date: 20100412
  Transmission Date: 20101027
  Serious: Yes (Hospitalization)
  Sender: FDA-Public Use
  Company Number: GXKR2009DE09042

PATIENT
  Age: 80 Year
  Sex: Female
  Weight: 59 kg

DRUGS (16)
  1. METHOTREXATE [Suspect]
     Indication: RHEUMATOID ARTHRITIS
     Dosage: 10 ML, UNK
     Route: 058
     Dates: start: 20081101, end: 20090504
  2. AMLODIPINE [Suspect]
     Indication: HYPERTENSION
     Dosage: 5 MG, QD
     Route: 048
     Dates: start: 20081101, end: 20090515
  3. FALITHROM (NGX) [Suspect]
     Indication: TACHYARRHYTHMIA
     Dosage: 3 MG, QD
     Route: 048
     Dates: start: 20081101, end: 20090504
  4. OMEPRAZOLE [Suspect]
     Indication: PROPHYLAXIS AGAINST GASTROINTESTINAL ULCER
     Dosage: 20 MG, QD
     Route: 048
     Dates: start: 20081101, end: 20090503
  5. SIMVAHEXAL (NGX) [Suspect]
     Indication: HYPERLIPIDAEMIA
     Dosage: 40 MG, QD
     Route: 048
     Dates: start: 20081101, end: 20090505
  6. TORASEMIDE (NGX) [Suspect]
     Indication: HYPERTENSION
     Dosage: 200 MG, QD
     Route: 048
     Dates: start: 20081101
  7. CORDANUM [Suspect]
     Indication: TACHYARRHYTHMIA
     Dosage: 50 MG, QD
     Route: 048
     Dates: start: 20081101, end: 20090504
  8. DELIX [Suspect]
     Indication: HYPERTENSION
     Dosage: 1.25 MG, QD
     Dates: start: 20090513
  9. DELIX [Suspect]
     Dosage: 2.5 MG, QD
     Route: 048
     Dates: start: 20000101
  10. SEROQUEL [Suspect]
     Indication: RESTLESSNESS
     Dosage: 25 MG, QD
     Dates: start: 20081101
  11. ACTONEL WITH CALCIUM (COPACKAGED) [Concomitant]
     Route: 048
  12. DIGITOXIN TAB [Concomitant]
  13. DREISAFER [Concomitant]
     Route: 048
  14. FOLIC ACID [Concomitant]
     Route: 048
  15. PREDNISOLON [Concomitant]
     Route: 048
  16. XIPAMIDE [Concomitant]
     Route: 048

REACTIONS (2)
  - ALVEOLITIS [None]
  - TRANSAMINASES INCREASED [None]
